FAERS Safety Report 9710979 (Version 1)
Quarter: 2013Q4

REPORT INFORMATION
  Report Type: Spontaneous
  Country: US (occurrence: US)
  Receive Date: 20131126
  Receipt Date: 20131126
  Transmission Date: 20140711
  Serious: No
  Sender: FDA-Public Use
  Company Number: US-BRISTOL-MYERS SQUIBB COMPANY-19089754

PATIENT
  Age: 43 Year
  Sex: Female
  Weight: 111.11 kg

DRUGS (2)
  1. BYETTA PEN DISPOSABLE [Suspect]
     Route: 058
  2. METFORMIN [Concomitant]

REACTIONS (3)
  - Dizziness [Recovered/Resolved]
  - Hyperhidrosis [Recovered/Resolved]
  - Abdominal pain [Recovered/Resolved]
